FAERS Safety Report 15752889 (Version 1)
Quarter: 2018Q4

REPORT INFORMATION
  Report Type: Report from Study
  Country: CA (occurrence: CA)
  Receive Date: 20181221
  Receipt Date: 20181221
  Transmission Date: 20190205
  Serious: Yes (Other)
  Sender: FDA-Public Use
  Company Number: PHHY2018CA024041

PATIENT
  Age: 72 Year
  Sex: Male

DRUGS (10)
  1. ENTRESTO [Suspect]
     Active Substance: SACUBITRIL\VALSARTAN
     Indication: CARDIAC FAILURE
     Dosage: 2 DF (24MG SACUBITRIL/26MGVALSARTAN), UNK
     Route: 065
     Dates: start: 20170908, end: 20171123
  2. ENTRESTO [Suspect]
     Active Substance: SACUBITRIL\VALSARTAN
     Dosage: 5 DF (24MG SACUBITRIL/26MG,VALSARTAN)
     Route: 065
     Dates: start: 20180424, end: 20180523
  3. ENTRESTO [Suspect]
     Active Substance: SACUBITRIL\VALSARTAN
     Dosage: 3 DF (24MG SACUBITRIL/26MG,VALSARTAN)
     Route: 065
     Dates: start: 20180321, end: 20180409
  4. ENTRESTO [Suspect]
     Active Substance: SACUBITRIL\VALSARTAN
     Dosage: 4 DF (24MG SACUBITRIL/26MG,VALSARTAN)
     Route: 065
     Dates: start: 20180409, end: 20180424
  5. ENTRESTO [Suspect]
     Active Substance: SACUBITRIL\VALSARTAN
     Dosage: 6 DF (24MG SACUBITRIL/26MG,VALSARTAN)
     Route: 065
     Dates: start: 20180523, end: 20180620
  6. ENTRESTO [Suspect]
     Active Substance: SACUBITRIL\VALSARTAN
     Dosage: 4 DF (24MG SACUBITRIL/26MG,VALSARTAN)
     Route: 065
     Dates: start: 20180823
  7. ENTRESTO [Suspect]
     Active Substance: SACUBITRIL\VALSARTAN
     Dosage: 4 DF (24MG SACUBITRIL/26MG,VALSARTAN)
     Route: 065
     Dates: start: 20171207, end: 20171221
  8. ENTRESTO [Suspect]
     Active Substance: SACUBITRIL\VALSARTAN
     Dosage: 2 DF (24MG SACUBITRIL/26MG,VALSARTAN)
     Route: 065
     Dates: start: 20180104, end: 20180321
  9. ENTRESTO [Suspect]
     Active Substance: SACUBITRIL\VALSARTAN
     Dosage: 7 DF (24MG SACUBITRIL/26MG,VALSARTAN)
     Route: 065
     Dates: start: 20180620, end: 20180823
  10. ENTRESTO [Suspect]
     Active Substance: SACUBITRIL\VALSARTAN
     Dosage: 3 DF (24MG SACUBITRIL/26MG,VALSARTAN)
     Route: 065
     Dates: start: 20171123, end: 20171207

REACTIONS (2)
  - Dizziness [Recovered/Resolved]
  - Syncope [Recovered/Resolved]

NARRATIVE: CASE EVENT DATE: 20180523
